FAERS Safety Report 17996688 (Version 2)
Quarter: 2020Q3

REPORT INFORMATION
  Report Type: Spontaneous
  Country: IN (occurrence: IN)
  Receive Date: 20200708
  Receipt Date: 20200710
  Transmission Date: 20201103
  Serious: Yes (Hospitalization, Other)
  Sender: FDA-Public Use
  Company Number: IN-AKRON, INC.-2087145

PATIENT
  Age: 30 Year
  Sex: Male

DRUGS (2)
  1. CIPROFLOXACIN. [Suspect]
     Active Substance: CIPROFLOXACIN
     Route: 047
  2. CHLORAMPHENICOL SODIUM SUCCINATE. [Suspect]
     Active Substance: CHLORAMPHENICOL SODIUM SUCCINATE

REACTIONS (1)
  - Toxic optic neuropathy [Recovered/Resolved]
